FAERS Safety Report 9899154 (Version 2)
Quarter: 2014Q3

REPORT INFORMATION
  Report Type: Spontaneous
  Country: US (occurrence: US)
  Receive Date: 20140214
  Receipt Date: 20140811
  Transmission Date: 20150326
  Serious: Yes (Hospitalization, Other)
  Sender: FDA-Public Use
  Company Number: US-009507513-1402USA006613

PATIENT
  Sex: Female

DRUGS (2)
  1. NUVARING [Suspect]
     Active Substance: ETHINYL ESTRADIOL\ETONOGESTREL
     Indication: ENDOMETRIOSIS
  2. NUVARING [Suspect]
     Active Substance: ETHINYL ESTRADIOL\ETONOGESTREL
     Indication: CONTRACEPTION
     Dosage: 0.12-0.015/MG/24 HR, 3 WEEKS IN, 1 WEEK OUT
     Route: 067
     Dates: start: 2004

REACTIONS (10)
  - Generalised anxiety disorder [Unknown]
  - Limb injury [Unknown]
  - Depression [Unknown]
  - Off label use [Unknown]
  - Pulmonary embolism [Unknown]
  - Sciatica [Unknown]
  - Irritable bowel syndrome [Unknown]
  - Appendicectomy [Unknown]
  - Deep vein thrombosis [Unknown]
  - Premenstrual syndrome [Unknown]

NARRATIVE: CASE EVENT DATE: 201208
